FAERS Safety Report 6470614-6 (Version None)
Quarter: 2009Q4

REPORT INFORMATION
  Report Type: 
  Country: None (occurrence: None)
  Receive Date: 20091203
  Receipt Date: 20090113
  Transmission Date: 20100525
  Serious: No
  Sender: FDA-Public Use
  Company Number: US-ABBOTT-09P-163-0497956-00

PATIENT
  Sex: Female
  Weight: 90.8 kg

DRUGS (6)
  1. MERIDIA [Suspect]
     Indication: WEIGHT DECREASED
     Dates: start: 20081217, end: 20090113
  2. UNKNOWN OVER THE COUNTER WEIGHT LOSS PILL [Concomitant]
     Indication: WEIGHT DECREASED
     Dosage: UNKNOWN
  3. FISH OIL COMPLEX [Concomitant]
     Indication: DRUG USE FOR UNKNOWN INDICATION
     Route: 048
  4. B COMPLEX WITH VITAMIN C [Concomitant]
     Indication: DRUG USE FOR UNKNOWN INDICATION
     Dosage: UNKNOWN
  5. ASPIRIN [Concomitant]
     Indication: ROUTINE HEALTH MAINTENANCE
  6. CLARITIN [Concomitant]
     Indication: HYPERSENSITIVITY
     Route: 048

REACTIONS (2)
  - BRONCHITIS [None]
  - DRUG SCREEN POSITIVE [None]
